FAERS Safety Report 11465162 (Version 5)
Quarter: 2016Q2

REPORT INFORMATION
  Report Type: Report from Study
  Country: GB (occurrence: GB)
  Receive Date: 20150907
  Receipt Date: 20160630
  Transmission Date: 20160815
  Serious: Yes (Other)
  Sender: FDA-Public Use
  Company Number: GB-ROCHE-1609403

PATIENT
  Sex: Male

DRUGS (2)
  1. ESBRIET [Suspect]
     Active Substance: PIRFENIDONE
     Route: 048
  2. ESBRIET [Suspect]
     Active Substance: PIRFENIDONE
     Indication: IDIOPATHIC PULMONARY FIBROSIS
     Route: 048
     Dates: start: 20150114, end: 201506

REACTIONS (7)
  - Disturbance in attention [Unknown]
  - Cough [Not Recovered/Not Resolved]
  - Cough [Recovered/Resolved]
  - Rash [Recovered/Resolved]
  - Sunburn [Recovered/Resolved]
  - Nasal congestion [Unknown]
  - Dyspnoea [Unknown]
